FAERS Safety Report 21750978 (Version 3)
Quarter: 2023Q1

REPORT INFORMATION
  Report Type: Spontaneous
  Country: US (occurrence: US)
  Receive Date: 20221219
  Receipt Date: 20230327
  Transmission Date: 20230418
  Serious: Yes (Hospitalization, Other)
  Sender: FDA-Public Use
  Company Number: US-GLAXOSMITHKLINE-US2022AMR188695

PATIENT
  Age: 28 Year
  Sex: Female

DRUGS (18)
  1. LAMICTAL [Suspect]
     Active Substance: LAMOTRIGINE
     Indication: Affective disorder
     Dosage: UNK
  2. LAMICTAL [Suspect]
     Active Substance: LAMOTRIGINE
     Indication: Anxiety
  3. ALBUTEROL [Suspect]
     Active Substance: ALBUTEROL
     Dosage: UNK
     Dates: start: 20210205, end: 20220908
  4. IBUPROFEN [Suspect]
     Active Substance: IBUPROFEN
     Indication: Product used for unknown indication
     Dosage: 600 MG
  5. OLANZAPINE [Suspect]
     Active Substance: OLANZAPINE
     Indication: Product used for unknown indication
     Dosage: 2 DF, BID
  6. BUDESONIDE [Suspect]
     Active Substance: BUDESONIDE
     Indication: Product used for unknown indication
     Dosage: UNK, QD
     Dates: start: 20221012
  7. DEXTROMETHORPHAN\PROMETHAZINE [Suspect]
     Active Substance: DEXTROMETHORPHAN\PROMETHAZINE
     Indication: Product used for unknown indication
     Dosage: 5 ML, ORAL, Q6H, PRN COUGH
     Route: 048
     Dates: start: 20210205, end: 20210920
  8. HYDROXYZINE [Suspect]
     Active Substance: HYDROXYZINE HYDROCHLORIDE
     Indication: Product used for unknown indication
     Dosage: 25 MG = 1 TABS,
     Route: 048
     Dates: start: 20210205, end: 20210325
  9. GABAPENTIN [Suspect]
     Active Substance: GABAPENTIN
     Indication: Product used for unknown indication
     Dosage: 300 MG = 1 CAPS, BID,
     Route: 048
  10. ACYCLOVIR [Suspect]
     Active Substance: ACYCLOVIR
     Indication: Product used for unknown indication
     Dosage: 800 MG = 1 TABS,  TID,
     Route: 048
     Dates: start: 20210205, end: 20210920
  11. ARIPIPRAZOLE [Suspect]
     Active Substance: ARIPIPRAZOLE
     Indication: Product used for unknown indication
     Dosage: 30 MG = 1 TABS, , QDAY,
     Route: 048
  12. DIPHENHYDRAMINE [Suspect]
     Active Substance: DIPHENHYDRAMINE
     Indication: Product used for unknown indication
     Dosage: 50 MG, FORM: INJECTION, ONCE-NOW, PRN
     Route: 042
     Dates: start: 20210205, end: 20210205
  13. EPINEPHRINE [Suspect]
     Active Substance: EPINEPHRINE
     Indication: Product used for unknown indication
     Dosage: 0.3 MG, FORM: INJECTION, ONCE-NOW, PRN
     Route: 030
     Dates: start: 20210205, end: 20210205
  14. HYDROCORTISONE [Suspect]
     Active Substance: HYDROCORTISONE
     Indication: Product used for unknown indication
     Dosage: 100 MG,   FORM: POWDER-INJ, ONCE-NOW, PRN
     Route: 042
  15. SODIUM CHLORIDE [Suspect]
     Active Substance: SODIUM CHLORIDE
     Indication: Product used for unknown indication
     Dosage: 1,000 ML, FORM: SOLN-IV, ONCE-NOW, PRN
     Route: 042
     Dates: start: 20210205, end: 20210205
  16. ACETAMINOPHEN [Suspect]
     Active Substance: ACETAMINOPHEN
     Indication: Product used for unknown indication
     Dosage: 650 MG, QD
     Route: 048
  17. TRETINOIN [Suspect]
     Active Substance: TRETINOIN
     Indication: Product used for unknown indication
     Dosage: 1 APP,  NIGHTLY
     Route: 061
     Dates: start: 20230131
  18. ABILIFY [Suspect]
     Active Substance: ARIPIPRAZOLE
     Indication: Product used for unknown indication
     Dosage: UNK

REACTIONS (58)
  - Stevens-Johnson syndrome [Unknown]
  - Toxic epidermal necrolysis [Unknown]
  - Anaphylactic reaction [Unknown]
  - Ventricular tachycardia [Unknown]
  - Ventricular fibrillation [Unknown]
  - Skin necrosis [Unknown]
  - Angioedema [Unknown]
  - Hyperkalaemia [Unknown]
  - Conjunctival haemorrhage [Unknown]
  - Eye swelling [Unknown]
  - Lip swelling [Unknown]
  - Rash [Unknown]
  - Blister [Unknown]
  - Oropharyngeal pain [Unknown]
  - Hypersensitivity [Unknown]
  - Purpura [Unknown]
  - Pyrexia [Unknown]
  - Eye discharge [Unknown]
  - Vision blurred [Unknown]
  - Oral mucosal eruption [Unknown]
  - Cheilitis [Unknown]
  - Tachycardia [Unknown]
  - Tachypnoea [Unknown]
  - Leukocytosis [Unknown]
  - Peripheral swelling [Unknown]
  - Pain in extremity [Unknown]
  - Oral mucosal blistering [Unknown]
  - Conjunctival hyperaemia [Recovered/Resolved]
  - Anxiety [Unknown]
  - Flushing [Unknown]
  - Urticaria [Unknown]
  - Dyspnoea [Unknown]
  - Chest pain [Unknown]
  - Back pain [Unknown]
  - Pruritus [Unknown]
  - Hypertension [Unknown]
  - Dizziness [Unknown]
  - Nasal congestion [Unknown]
  - Sinus tachycardia [Unknown]
  - Gastrointestinal disorder [Unknown]
  - Cutaneous symptom [Unknown]
  - Hypotension [Unknown]
  - Oral mucosal exfoliation [Unknown]
  - Skin exfoliation [Unknown]
  - Increased bronchial secretion [Unknown]
  - Wheezing [Unknown]
  - Mouth haemorrhage [Unknown]
  - Lymphocytic infiltration [Unknown]
  - Diarrhoea [Unknown]
  - Agitation [Unknown]
  - Blood sodium decreased [Unknown]
  - Blood phosphorus decreased [Unknown]
  - Haemoglobin decreased [Unknown]
  - Restlessness [Unknown]
  - Labile blood pressure [Unknown]
  - Sleep disorder [Unknown]
  - Confusional state [Unknown]
  - Off label use [Unknown]

NARRATIVE: CASE EVENT DATE: 20210201
